FAERS Safety Report 9457758 (Version 1)
Quarter: 2013Q3

REPORT INFORMATION
  Report Type: Spontaneous
  Country: US (occurrence: None)
  Receive Date: 20130809
  Receipt Date: 20130809
  Transmission Date: 20140515
  Serious: Yes (Other)
  Sender: FDA-Public Use
  Company Number: SYM-2013-07803

PATIENT
  Age: 40 Year
  Sex: Female
  Weight: 63.5 kg

DRUGS (5)
  1. XENAZINE [Suspect]
     Indication: TARDIVE DYSKINESIA
     Route: 048
     Dates: start: 20130731, end: 20130731
  2. WELLBBUTRIN (BUPROPION HYDROCHLORIDE) (450 MILLIGRAM) (BUPROPION HYDROCHLORIDE) [Concomitant]
  3. PROPRANOL (PROPANOLOL) (60 MILLIGRAM) (PROPANOLOL) [Concomitant]
  4. LYRICA (PREGAMBLIN) (100 MILLIGRAM) (PREGAMBLIN) [Concomitant]
  5. XANAX (ALPRAZOLAM) (1 MILLIGRAM) )ALPRAZOLAM) [Concomitant]

REACTIONS (3)
  - Nausea [None]
  - Dysphagia [None]
  - Throat tightness [None]
